FAERS Safety Report 14534839 (Version 6)
Quarter: 2018Q2

REPORT INFORMATION
  Report Type: Report from Study
  Country: US (occurrence: US)
  Receive Date: 20180215
  Receipt Date: 20180628
  Transmission Date: 20180711
  Serious: Yes (Other)
  Sender: FDA-Public Use
  Company Number: US-PFIZER INC-2018044048

PATIENT
  Age: 68 Year
  Sex: Female

DRUGS (3)
  1. IBRANCE [Suspect]
     Active Substance: PALBOCICLIB
     Indication: BREAST CANCER FEMALE
     Dosage: 125 MG, DAILY
     Route: 048
     Dates: start: 20180103, end: 20180130
  2. IBRANCE [Suspect]
     Active Substance: PALBOCICLIB
     Dosage: 100 MG, CYCLIC (DAILY, FOR 21 DAYS AND 7 DAYS OFF)
     Route: 048
     Dates: start: 20180207, end: 20180524
  3. FEMARA [Concomitant]
     Active Substance: LETROZOLE
     Dosage: UNK, DAILY
     Route: 048

REACTIONS (13)
  - Pain [Not Recovered/Not Resolved]
  - Dizziness [Unknown]
  - Nasopharyngitis [Recovered/Resolved]
  - Vision blurred [Unknown]
  - Bone marrow failure [Unknown]
  - Arthralgia [Not Recovered/Not Resolved]
  - Rhinorrhoea [Not Recovered/Not Resolved]
  - Hot flush [Unknown]
  - Leukopenia [Not Recovered/Not Resolved]
  - Laryngitis [Recovered/Resolved]
  - Constipation [Unknown]
  - Haemorrhoids [Unknown]
  - Tremor [Unknown]

NARRATIVE: CASE EVENT DATE: 2018
